FAERS Safety Report 16265226 (Version 1)
Quarter: 2019Q2

REPORT INFORMATION
  Report Type: Report from Study
  Country: ES (occurrence: ES)
  Receive Date: 20190502
  Receipt Date: 20190502
  Transmission Date: 20190711
  Serious: Yes (Other)
  Sender: FDA-Public Use
  Company Number: ES-AMGEN-ESPCT2019066946

PATIENT
  Age: 52 Year
  Sex: Male
  Weight: 85.3 kg

DRUGS (5)
  1. DOXYCYCLINE. [Suspect]
     Active Substance: DOXYCYCLINE
     Dosage: 100 MILLIGRAM, QD
     Route: 048
     Dates: start: 20190424
  2. PANITUMUMAB [Suspect]
     Active Substance: PANITUMUMAB
     Indication: COLORECTAL CANCER METASTATIC
     Route: 065
  3. DOXYCYCLINE. [Suspect]
     Active Substance: DOXYCYCLINE
     Indication: PROPHYLAXIS
     Dosage: 200 MILLIGRAM, QD
     Route: 048
     Dates: start: 20190326, end: 20190423
  4. BISOPROLOL [Concomitant]
     Active Substance: BISOPROLOL
     Indication: ATRIAL FIBRILLATION
     Dosage: 5 MILLIGRAM
     Route: 048
     Dates: start: 20190219
  5. FERROGLYCINE SULFATE [Concomitant]
     Active Substance: FERROGLYCINE SULFATE
     Indication: ANAEMIA
     Dosage: 100 MILLIGRAM
     Route: 048
     Dates: start: 20190206

REACTIONS (1)
  - Overdose [Recovered/Resolved]

NARRATIVE: CASE EVENT DATE: 20190326
